FAERS Safety Report 6537653-8 (Version None)
Quarter: 2010Q1

REPORT INFORMATION
  Report Type: 
  Country: None (occurrence: None)
  Receive Date: 20100114
  Receipt Date: 20100106
  Transmission Date: 20100710
  Serious: Yes (Hospitalization)
  Sender: FDA-Public Use
  Company Number: B0622340A

PATIENT
  Sex: Female

DRUGS (4)
  1. RANIPLEX [Suspect]
     Indication: PREMEDICATION
     Dosage: 25MG PER DAY
     Route: 042
     Dates: start: 20091027, end: 20091027
  2. POLARAMINE [Suspect]
     Indication: PREMEDICATION
     Dosage: 2.5MG PER DAY
     Route: 042
     Dates: start: 20091027, end: 20091027
  3. METHYLPREDNISOLONE 4MG TAB [Suspect]
     Indication: PREMEDICATION
     Dosage: 60MG PER DAY
     Route: 042
     Dates: start: 20091027, end: 20091027
  4. CHEMOTHERAPY [Concomitant]
     Route: 065

REACTIONS (5)
  - BURNING SENSATION [None]
  - FACIAL PAIN [None]
  - MIGRAINE WITH AURA [None]
  - PARAESTHESIA [None]
  - VISION BLURRED [None]
